FAERS Safety Report 14351275 (Version 1)
Quarter: 2018Q1

REPORT INFORMATION
  Report Type: Spontaneous
  Country: GB (occurrence: GB)
  Receive Date: 20180104
  Receipt Date: 20180104
  Transmission Date: 20180509
  Serious: Yes (Other)
  Sender: FDA-Public Use
  Company Number: GB-BAUSCH-BL-2017-035966

PATIENT
  Age: 79 Year
  Sex: Female
  Weight: 73 kg

DRUGS (7)
  1. PREDNISOLONE. [Suspect]
     Active Substance: PREDNISOLONE
     Route: 048
     Dates: start: 20171116, end: 20171122
  2. ASACOL [Concomitant]
     Active Substance: MESALAMINE
     Indication: PRODUCT USED FOR UNKNOWN INDICATION
  3. PREDNISOLONE. [Suspect]
     Active Substance: PREDNISOLONE
     Route: 048
     Dates: start: 20171109, end: 20171115
  4. PREDNISOLONE. [Suspect]
     Active Substance: PREDNISOLONE
     Route: 048
     Dates: start: 20171102, end: 20171108
  5. PREDNISOLONE. [Suspect]
     Active Substance: PREDNISOLONE
     Route: 048
     Dates: start: 20171123, end: 20171129
  6. PREDNISOLONE. [Suspect]
     Active Substance: PREDNISOLONE
     Indication: COLITIS
     Route: 048
     Dates: start: 20171026, end: 20171101
  7. PREDNISOLONE. [Suspect]
     Active Substance: PREDNISOLONE
     Route: 048
     Dates: start: 20171130

REACTIONS (4)
  - Pain in extremity [Not Recovered/Not Resolved]
  - Musculoskeletal pain [Not Recovered/Not Resolved]
  - Arthralgia [Not Recovered/Not Resolved]
  - Back pain [Not Recovered/Not Resolved]

NARRATIVE: CASE EVENT DATE: 20171127
